FAERS Safety Report 15240001 (Version 7)
Quarter: 2018Q4

REPORT INFORMATION
  Report Type: Spontaneous
  Country: US (occurrence: US)
  Receive Date: 20180803
  Receipt Date: 20181116
  Transmission Date: 20190204
  Serious: Yes (Death, Hospitalization)
  Sender: FDA-Public Use
  Company Number: US-ACTELION-A-NJ2018-176694

PATIENT
  Age: 60 Year
  Sex: Female
  Weight: 56.69 kg

DRUGS (4)
  1. OPSUMIT [Suspect]
     Active Substance: MACITENTAN
     Indication: PULMONARY HYPERTENSION
     Dosage: 10 MG, QD
     Route: 048
  2. FLOLAN [Concomitant]
     Active Substance: EPOPROSTENOL SODIUM
  3. COUMADIN [Concomitant]
     Active Substance: WARFARIN SODIUM
  4. SILDENAFIL CITRATE. [Concomitant]
     Active Substance: SILDENAFIL CITRATE

REACTIONS (4)
  - Death [Fatal]
  - Hospitalisation [Unknown]
  - Lung transplant [Unknown]
  - Dyspnoea [Unknown]

NARRATIVE: CASE EVENT DATE: 20180727
